FAERS Safety Report 7371387-5 (Version None)
Quarter: 2011Q1

REPORT INFORMATION
  Report Type: 
  Country: None (occurrence: None)
  Receive Date: 20110322
  Receipt Date: 20110322
  Transmission Date: 20110831
  Serious: Yes (Life-Threatening, Other)
  Sender: FDA-Public Use
  Company Number: None

PATIENT
  Age: 23 Year
  Sex: Male
  Weight: 81.6475 kg

DRUGS (1)
  1. CIPROFLOXACIN [Suspect]
     Indication: PROSTATITIS
     Dosage: 1 TWICE DIALY PO
     Route: 048
     Dates: start: 20101220, end: 20110120

REACTIONS (6)
  - MENTAL DISORDER [None]
  - ASTHENIA [None]
  - VITREOUS FLOATERS [None]
  - DYSSTASIA [None]
  - HYPOAESTHESIA [None]
  - PAIN [None]
